FAERS Safety Report 5848076-9 (Version None)
Quarter: 2008Q3

REPORT INFORMATION
  Report Type: 
  Country: None (occurrence: None)
  Receive Date: 20080814
  Receipt Date: 20080728
  Transmission Date: 20090109
  Serious: Yes (Death, Hospitalization)
  Sender: FDA-Public Use
  Company Number: 003#3#2008-00126

PATIENT
  Age: 76 Year
  Sex: Male

DRUGS (27)
  1. GLYCERYL TRINITRATE (DOSE UNKNOWN), UNKNOWN (GLYCERYL TRINITRATE) [Suspect]
     Indication: DRUG USE FOR UNKNOWN INDICATION
     Dosage: 1
  2. ASPIRIN [Suspect]
     Indication: DRUG USE FOR UNKNOWN INDICATION
     Dosage: ORAL
     Route: 048
     Dates: start: 20040101
  3. DICLOFENAC SODIUM [Suspect]
     Indication: DRUG USE FOR UNKNOWN INDICATION
     Dosage: ORAL
     Route: 048
     Dates: start: 20050101
  4. ACETYLSALICYLIC ACID SRT [Concomitant]
  5. ATENOLOL, CHLORTALIDONE (ATENOLOL, CHLORTALIDONE) [Concomitant]
  6. GLYCERYL TRINITRATE (GLYCERYL TRINITRATE) [Concomitant]
  7. RAMIPRIL [Concomitant]
  8. SIMVASTATIN [Concomitant]
  9. SOFT SOAP (EMULSIFYING WAX, PARAFFIN, LIQUID, WHITE SOFT PARAFFIN) [Concomitant]
  10. CETIRIZINE HCL [Concomitant]
  11. CODEINE PHOSPHATE, PARACETAMOL (CODEINE PHOSPHATE, PARACETAMOL) [Concomitant]
  12. CLOBETASONE BUTYRATE (CLOBETASONE BUTYRATE) [Concomitant]
  13. FUSIDIC ACID (FUSIDATE SODIUM) [Concomitant]
  14. INOSITOL NICOTINATE (INOSITOL NICOTINATE) [Concomitant]
  15. HYDROCORTISONE [Concomitant]
  16. LACTULOSE [Concomitant]
  17. INFLUENZA VIRUS VACCINE POLYVALENT (INFLUENZA VIRUS VACCINE POLYVALENT [Concomitant]
  18. MACROGOL, POTASSIUM CHLORIDE, SODIUM CHLORIDE, SODIUM BICARBONATE (MAC [Concomitant]
  19. GLYCERYL TRINITRATE (GLYCERYL TRINITRATE) [Concomitant]
  20. PIVAMPICILLIN (PIVAMPICILLIN) [Concomitant]
  21. PNEUMOCOCCAL VACCINE (PNEUMOCOCCAL VACCINE) [Concomitant]
  22. IBUPROFEN [Concomitant]
  23. POTASSIUM CHLORIDE [Concomitant]
  24. ATENOLOL, CHLORTALIDONE (ATENOLOL, CHLORTALIDONE) [Concomitant]
  25. TRAMADOL HCL [Concomitant]
  26. INFLUENZA VACCINE (INFLUENZA VIRUS VACCINE POLYVALENT) [Concomitant]
  27. EPINEPHRINE, LIDOCAINE HYDROCHLORIDE [Concomitant]

REACTIONS (4)
  - ABDOMINAL PAIN [None]
  - FALL [None]
  - GASTROINTESTINAL HAEMORRHAGE [None]
  - PROSTATE CANCER [None]
